FAERS Safety Report 10428233 (Version 3)
Quarter: 2017Q2

REPORT INFORMATION
  Report Type: Spontaneous
  Country: US (occurrence: US)
  Receive Date: 20140903
  Receipt Date: 20170502
  Transmission Date: 20170829
  Serious: Yes (Hospitalization)
  Sender: FDA-Public Use
  Company Number: US-PFIZER INC-2014244714

PATIENT
  Age: 45 Year
  Sex: Female

DRUGS (2)
  1. PLAQUENIL [Concomitant]
     Active Substance: HYDROXYCHLOROQUINE SULFATE
     Indication: RHEUMATOID ARTHRITIS
     Dosage: 200 MG, 2X/DAY
  2. XELJANZ [Suspect]
     Active Substance: TOFACITINIB CITRATE
     Indication: RHEUMATOID ARTHRITIS
     Dosage: 5 MG, 2X/DAY
     Route: 048
     Dates: start: 20140703

REACTIONS (6)
  - Skin burning sensation [Unknown]
  - Cheilitis [Unknown]
  - Lip exfoliation [Recovered/Resolved]
  - Skin irritation [Unknown]
  - Infection [Unknown]
  - Oral discomfort [Unknown]

NARRATIVE: CASE EVENT DATE: 2014
